FAERS Safety Report 6307761-5 (Version None)
Quarter: 2009Q3

REPORT INFORMATION
  Report Type: 
  Country: None (occurrence: None)
  Receive Date: 20090812
  Receipt Date: 20090812
  Transmission Date: 20100115
  Serious: Yes (Other)
  Sender: FDA-Public Use
  Company Number: None

PATIENT
  Age: 58 Year
  Sex: Male
  Weight: 119.296 kg

DRUGS (1)
  1. ZONEGRAN [Suspect]
     Indication: ABDOMINAL PAIN UPPER
     Dosage: 1 INCREACING TO __ A DAY PO
     Route: 048
     Dates: start: 20080815, end: 20081016

REACTIONS (4)
  - OFF LABEL USE [None]
  - OPTIC NERVE SHEATH HAEMORRHAGE [None]
  - VISION BLURRED [None]
  - VISUAL IMPAIRMENT [None]
